FAERS Safety Report 5935533-X (Version None)
Quarter: 2008Q4

REPORT INFORMATION
  Report Type: 
  Country: None (occurrence: None)
  Receive Date: 20081030
  Receipt Date: 20081007
  Transmission Date: 20090506
  Serious: No
  Sender: FDA-Public Use
  Company Number: US-BAYER-200814007BCC

PATIENT
  Age: 39 Year
  Sex: Female
  Weight: 118 kg

DRUGS (1)
  1. MIDOL [Suspect]
     Indication: INTENTIONAL OVERDOSE
     Route: 048
     Dates: start: 20081007

REACTIONS (1)
  - NO ADVERSE EVENT [None]
